FAERS Safety Report 9410912 (Version 2)
Quarter: 2013Q3

REPORT INFORMATION
  Report Type: Spontaneous
  Country: US (occurrence: US)
  Receive Date: 20130719
  Receipt Date: 20130828
  Transmission Date: 20140515
  Serious: Yes (Hospitalization)
  Sender: FDA-Public Use
  Company Number: US-GILEAD-2013-0079656

PATIENT
  Sex: Male

DRUGS (6)
  1. LETAIRIS [Suspect]
     Indication: PULMONARY HYPERTENSION
     Dosage: 5 MG, QD
  2. LETAIRIS [Suspect]
     Indication: PULMONARY HYPERTENSION
  3. REMODULIN [Concomitant]
  4. TYVASO [Concomitant]
  5. ADCIRCA [Concomitant]
  6. REVATIO [Concomitant]

REACTIONS (1)
  - Endarterectomy [Unknown]
